FAERS Safety Report 9684619 (Version 2)
Quarter: 2013Q4

REPORT INFORMATION
  Report Type: Spontaneous
  Country: US (occurrence: US)
  Receive Date: 20131112
  Receipt Date: 20131120
  Transmission Date: 20140711
  Serious: Yes (Hospitalization)
  Sender: FDA-Public Use
  Company Number: US-MALLINCKRODT-T201304768

PATIENT
  Age: 74 Year
  Sex: Female

DRUGS (2)
  1. OPTIRAY [Suspect]
     Indication: UROGRAM
     Dosage: 100 ML, SINGLE, AT 2 CC PER SECOND
     Route: 042
     Dates: start: 20131022, end: 20131022
  2. PREDNISONE [Concomitant]
     Indication: PREMEDICATION
     Dosage: UNK
     Route: 065

REACTIONS (1)
  - Unresponsive to stimuli [Recovered/Resolved]
